FAERS Safety Report 10788524 (Version 9)
Quarter: 2015Q3

REPORT INFORMATION
  Report Type: Spontaneous
  Country: US (occurrence: US)
  Receive Date: 20150212
  Receipt Date: 20150729
  Transmission Date: 20151125
  Serious: Yes (Other)
  Sender: FDA-Public Use
  Company Number: US-PFIZER INC-2015055835

PATIENT
  Age: 67 Year
  Sex: Male

DRUGS (20)
  1. XELJANZ [Suspect]
     Active Substance: TOFACITINIB CITRATE
     Dosage: 5 MG, 2X/DAY
     Dates: start: 2012
  2. PRED FORTE [Concomitant]
     Active Substance: PREDNISOLONE ACETATE
     Dosage: UNK (1 DROP L EYE/D)
     Dates: start: 1989, end: 2014
  3. CALCIUM [Concomitant]
     Active Substance: CALCIUM
     Dosage: 600 MG, 2X/DAY (DOSE INCR 1 TO 2 2014)
     Route: 048
     Dates: start: 2002
  4. CPAP [Concomitant]
     Active Substance: DEVICE
     Dosage: UNK (OVERNIGHT)
     Dates: start: 2005
  5. JALYN [Concomitant]
     Active Substance: DUTASTERIDE\TAMSULOSIN HYDROCHLORIDE
     Dosage: 2.5 MG, DAILY
     Route: 048
     Dates: start: 201012
  6. SERETIDE [Concomitant]
     Active Substance: FLUTICASONE FUROATE\SALMETEROL XINAFOATE
     Dosage: 250-50 MCG/DOSE
  7. OMEPRAZOLE MAGNESIUM. [Concomitant]
     Active Substance: OMEPRAZOLE MAGNESIUM
     Dosage: 20 MG
     Dates: start: 2009
  8. PREDNISONE. [Concomitant]
     Active Substance: PREDNISONE
     Dosage: UNK
     Dates: start: 1989
  9. CPAP [Concomitant]
     Active Substance: DEVICE
     Dosage: UNK
     Dates: start: 2005
  10. JALYN [Concomitant]
     Active Substance: DUTASTERIDE\TAMSULOSIN HYDROCHLORIDE
     Dosage: ER MULTIPHASE 24 HR: 0.5-0.4 MG
  11. AUROTHIOGLUCOSE [Concomitant]
     Active Substance: AUROTHIOGLUCOSE
     Dosage: 2.5 MG, DAILY
     Route: 048
     Dates: start: 201012
  12. TIMOLOL. [Concomitant]
     Active Substance: TIMOLOL
     Dosage: 0.25% DROPS, DAILY (1 DROP L EYE/D)
     Dates: start: 201312
  13. CELEBREX [Suspect]
     Active Substance: CELECOXIB
     Indication: RHEUMATOID ARTHRITIS
     Dosage: 200 MG, DAILY
     Route: 048
     Dates: start: 2003
  14. ADINIR [Concomitant]
     Dosage: UNK
     Dates: start: 2013
  15. XELJANZ [Suspect]
     Active Substance: TOFACITINIB CITRATE
     Indication: RHEUMATOID ARTHRITIS
     Dosage: 5 MG, 2X/DAY
     Route: 048
     Dates: start: 201310
  16. CELEBREX [Suspect]
     Active Substance: CELECOXIB
     Dosage: 200 MG, 1X/DAY
     Dates: start: 2003
  17. PREDNISONE. [Concomitant]
     Active Substance: PREDNISONE
     Dosage: (40MG/D TO ZERO)
     Dates: start: 1989, end: 201412
  18. CALCIUM [Concomitant]
     Active Substance: CALCIUM
     Dosage: UNK
     Dates: start: 2002
  19. LOTEMAX [Concomitant]
     Active Substance: LOTEPREDNOL ETABONATE
     Dosage: 0.5% EYE DROPS AT 1 DROP ONCE A DAY AS DIRECTED INTO BOTH EYES
     Dates: start: 2014
  20. JALYN [Concomitant]
     Active Substance: DUTASTERIDE\TAMSULOSIN HYDROCHLORIDE
     Dosage: UNK

REACTIONS (8)
  - Retinal vein occlusion [Not Recovered/Not Resolved]
  - Retinal haemorrhage [Unknown]
  - Papilloedema [Not Recovered/Not Resolved]
  - Visual acuity reduced [Not Recovered/Not Resolved]
  - Optic disc haemorrhage [Not Recovered/Not Resolved]
  - Fatigue [Not Recovered/Not Resolved]
  - Hypertension [Recovered/Resolved]
  - Glaucoma [Unknown]

NARRATIVE: CASE EVENT DATE: 201411
